FAERS Safety Report 4425408-X (Version None)
Quarter: 2004Q3

REPORT INFORMATION
  Report Type: 
  Country: None (occurrence: None)
  Receive Date: 20040813
  Receipt Date: 20040624
  Transmission Date: 20050211
  Serious: Yes (Other)
  Sender: FDA-Public Use
  Company Number: SE-GLAXOSMITHKLINE-B0341311A

PATIENT
  Age: 53 Year
  Sex: Male

DRUGS (2)
  1. LAMICTAL [Suspect]
     Indication: EPILEPSY
     Dosage: 400MG PER DAY
     Route: 048
     Dates: start: 20030701, end: 20030916
  2. LITHIONIT [Concomitant]

REACTIONS (2)
  - LEUKOPENIA [None]
  - NIGHT SWEATS [None]
